FAERS Safety Report 14165891 (Version 2)
Quarter: 2017Q4

REPORT INFORMATION
  Report Type: Report from Study
  Country: US (occurrence: US)
  Receive Date: 20171107
  Receipt Date: 20171117
  Transmission Date: 20180321
  Serious: Yes (Other)
  Sender: FDA-Public Use
  Company Number: US-ALEXION-A201712164

PATIENT
  Sex: Female

DRUGS (2)
  1. STRENSIQ [Suspect]
     Active Substance: ASFOTASE ALFA
     Indication: HYPOPHOSPHATASIA
     Dosage: UNK
     Route: 065
  2. VITAMIN B6 [Concomitant]
     Active Substance: PYRIDOXINE HYDROCHLORIDE
     Indication: BEHAVIOURAL THERAPY
     Dosage: UNKNOWN
     Route: 065

REACTIONS (4)
  - Seizure [Unknown]
  - Anger [Unknown]
  - Irritability [Unknown]
  - Aggression [Unknown]

NARRATIVE: CASE EVENT DATE: 201708
